FAERS Safety Report 4592998-6 (Version None)
Quarter: 2005Q1

REPORT INFORMATION
  Report Type: 
  Country: None (occurrence: None)
  Receive Date: 20050125
  Receipt Date: 20040824
  Transmission Date: 20050727
  Serious: No
  Sender: FDA-Public Use
  Company Number: USA040876390

PATIENT
  Age: 52 Year
  Sex: Male
  Weight: 56 kg

DRUGS (2)
  1. FORTEO [Suspect]
     Indication: ACCIDENT
     Dates: start: 20040501
  2. FORTEO [Suspect]
     Indication: SPINAL FRACTURE
     Dates: start: 20040501

REACTIONS (1)
  - WEIGHT DECREASED [None]
